FAERS Safety Report 7929831-8 (Version None)
Quarter: 2011Q4

REPORT INFORMATION
  Report Type: 
  Country: None (occurrence: None)
  Receive Date: 20111121
  Receipt Date: 20111115
  Transmission Date: 20120403
  Serious: Yes (Hospitalization, Other)
  Sender: FDA-Public Use
  Company Number: US-JNJFOC-20110805028

PATIENT
  Sex: Female

DRUGS (5)
  1. LEVAQUIN [Suspect]
     Indication: DIVERTICULITIS
     Route: 048
     Dates: start: 20080301, end: 20090501
  2. CLONAZEPAM [Concomitant]
     Indication: DEPRESSION
     Dates: start: 20040101
  3. LEVAQUIN [Suspect]
     Route: 042
     Dates: start: 20090503
  4. CLONAZEPAM [Concomitant]
     Indication: ANXIETY
     Dates: start: 20040101
  5. CLONAZEPAM [Concomitant]
     Indication: BIPOLAR DISORDER
     Dates: start: 20040101

REACTIONS (2)
  - TENDONITIS [None]
  - TENOSYNOVITIS STENOSANS [None]
